FAERS Safety Report 4434133-0 (Version None)
Quarter: 2004Q3

REPORT INFORMATION
  Report Type: 
  Country: None (occurrence: None)
  Receive Date: 20040825
  Receipt Date: 20040816
  Transmission Date: 20050211
  Serious: Yes (Hospitalization)
  Sender: FDA-Public Use
  Company Number: DE-2004-029863

PATIENT
  Age: 47 Year
  Sex: Female
  Weight: 80 kg

DRUGS (1)
  1. MAGNEVIST [Suspect]
     Indication: NUCLEAR MAGNETIC RESONANCE IMAGING
     Dosage: 16 ML, 1 DOSE, INTRAVENOUS
     Route: 042
     Dates: start: 20040810, end: 20040810

REACTIONS (5)
  - COUGH [None]
  - DIZZINESS [None]
  - NAUSEA [None]
  - SENSATION OF FOREIGN BODY [None]
  - THROAT IRRITATION [None]
